FAERS Safety Report 12118720 (Version 1)
Quarter: 2016Q1

REPORT INFORMATION
  Report Type: Spontaneous
  Country: US (occurrence: US)
  Receive Date: 20160226
  Receipt Date: 20160226
  Transmission Date: 20160526
  Serious: No
  Sender: FDA-Public Use
  Company Number: US-TEVA-633229ACC

PATIENT
  Sex: Female
  Weight: 86.71 kg

DRUGS (2)
  1. PARAGARD T 380A [Suspect]
     Active Substance: COPPER
     Indication: CONTRACEPTION
     Route: 015
     Dates: start: 2014
  2. CORTIZONE 10 [Concomitant]
     Active Substance: HYDROCORTISONE
     Indication: ECZEMA

REACTIONS (7)
  - Hypersensitivity [Unknown]
  - Anger [Unknown]
  - Eye swelling [Not Recovered/Not Resolved]
  - Vulvovaginal pruritus [Recovered/Resolved]
  - Pruritus [Not Recovered/Not Resolved]
  - Weight increased [Unknown]
  - Vulvovaginal swelling [Recovered/Resolved]
